FAERS Safety Report 4431667-X (Version None)
Quarter: 2004Q3

REPORT INFORMATION
  Report Type: 
  Country: None (occurrence: None)
  Receive Date: 20040721
  Receipt Date: 20040426
  Transmission Date: 20050211
  Serious: Yes (Other)
  Sender: FDA-Public Use
  Company Number: 2004027839

PATIENT
  Sex: 0

DRUGS (1)
  1. RELPAX [Suspect]
     Indication: HEADACHE
     Dosage: INTERVAL

REACTIONS (2)
  - CONDITION AGGRAVATED [None]
  - HEADACHE [None]
